FAERS Safety Report 13851241 (Version 2)
Quarter: 2017Q3

REPORT INFORMATION
  Report Type: Report from Study
  Country: BR (occurrence: BR)
  Receive Date: 20170810
  Receipt Date: 20170913
  Transmission Date: 20171127
  Serious: Yes (Other)
  Sender: FDA-Public Use
  Company Number: BR-ROCHE-1974227

PATIENT
  Age: 56 Year
  Sex: Female
  Weight: 89 kg

DRUGS (2)
  1. ACTEMRA [Suspect]
     Active Substance: TOCILIZUMAB
     Indication: RHEUMATOID ARTHRITIS
     Dosage: LATEST INFUSION ON 06/SEP/2017
     Route: 042
     Dates: start: 20130925
  2. METHOTREXATE. [Concomitant]
     Active Substance: METHOTREXATE

REACTIONS (3)
  - Urinary tract infection [Unknown]
  - Arthropathy [Recovering/Resolving]
  - Limb deformity [Recovering/Resolving]

NARRATIVE: CASE EVENT DATE: 201709
